FAERS Safety Report 8242742-6 (Version None)
Quarter: 2012Q1

REPORT INFORMATION
  Report Type: 
  Country: None (occurrence: None)
  Receive Date: 20120329
  Receipt Date: 20120320
  Transmission Date: 20120608
  Serious: Yes (Hospitalization)
  Sender: FDA-Public Use
  Company Number: US-BRISTOL-MYERS SQUIBB COMPANY-16464851

PATIENT
  Age: 70 Year
  Sex: Male
  Weight: 84 kg

DRUGS (13)
  1. NIASPAN [Concomitant]
  2. AXITINIB [Suspect]
     Indication: METASTATIC MALIGNANT MELANOMA
     Dosage: 2 WEEKS ON, 1 WEEK OFF;INTERRUPTED 02FEB2012,RESTARTED ON 15FEB2012;CYCLE 6
     Route: 048
     Dates: start: 20110926
  3. METOPROLOL SUCCINATE [Concomitant]
  4. METFORMIN HCL [Concomitant]
  5. AMLODIPINE [Concomitant]
  6. HYDROCHLOROTHIAZIDE [Concomitant]
  7. GLIPIZIDE [Concomitant]
  8. POTASSIUM CHLORIDE [Concomitant]
  9. MIRALAX [Concomitant]
  10. PACLITAXEL [Suspect]
     Indication: METASTATIC MALIGNANT MELANOMA
     Dosage: INTERRUPTED 25JAN2012,RESTARTED ON 15FEB2012;CYCLE 6
     Route: 042
  11. LISINOPRIL [Concomitant]
  12. CARBOPLATIN [Suspect]
     Indication: METASTATIC MALIGNANT MELANOMA
     Dosage: INTERRUPTED 25JAN2012,RESTARTED ON 15FEB2012;CYCLE 6
     Route: 042
  13. ASPIRIN [Concomitant]

REACTIONS (2)
  - ATAXIA [None]
  - DYSPNOEA [None]
